FAERS Safety Report 8828048 (Version 2)
Quarter: 2012Q4

REPORT INFORMATION
  Report Type: 
  Country: BR (occurrence: BR)
  Receive Date: 20121008
  Receipt Date: 20121106
  Transmission Date: 20130627
  Serious: Yes (Other)
  Sender: FDA-Public Use
  Company Number: PHHY2012BR085207

PATIENT
  Sex: Female
  Weight: 35 kg

DRUGS (3)
  1. TRILEPTAL [Suspect]
     Indication: EPILEPSY
     Dosage: 750 mg a day
     Route: 048
  2. TRILEPTAL [Suspect]
     Indication: CONVULSION
  3. PREDNISONE [Concomitant]
     Indication: INFLAMMATION
     Dosage: UNK UKN, UNK

REACTIONS (5)
  - Humerus fracture [Recovered/Resolved]
  - Fall [Unknown]
  - Muscle rigidity [Unknown]
  - Petit mal epilepsy [Not Recovered/Not Resolved]
  - Drug ineffective [Unknown]
